FAERS Safety Report 8548754-7 (Version None)
Quarter: 2012Q3

REPORT INFORMATION
  Report Type: 
  Country: None (occurrence: None)
  Receive Date: 20120730
  Receipt Date: 20120724
  Transmission Date: 20120928
  Serious: Yes (Hospitalization)
  Sender: FDA-Public Use
  Company Number: PHHY2012DE064600

PATIENT
  Sex: Male

DRUGS (1)
  1. EXJADE [Suspect]
     Indication: IRON OVERLOAD
     Dosage: 1375 MG, PER DAY
     Dates: start: 20120204, end: 20120522

REACTIONS (4)
  - MEMORY IMPAIRMENT [None]
  - FATIGUE [None]
  - LISTLESS [None]
  - PERSONALITY CHANGE [None]
